FAERS Safety Report 19944924 (Version 1)
Quarter: 2021Q4

REPORT INFORMATION
  Report Type: Spontaneous
  Country: TW (occurrence: TW)
  Receive Date: 20211012
  Receipt Date: 20211012
  Transmission Date: 20220303
  Serious: Yes (Other)
  Sender: FDA-Public Use
  Company Number: TW-009507513-2110TWN002446

PATIENT
  Age: 42 Year
  Sex: Male

DRUGS (1)
  1. PEMBROLIZUMAB [Suspect]
     Active Substance: PEMBROLIZUMAB
     Indication: Squamous cell carcinoma of the tongue
     Dosage: UNK

REACTIONS (5)
  - Stevens-Johnson syndrome [Recovering/Resolving]
  - Punctate keratitis [Unknown]
  - Conjunctivitis [Recovering/Resolving]
  - Dry eye [Unknown]
  - Conjunctival scar [Unknown]
